FAERS Safety Report 16844818 (Version 2)
Quarter: 2020Q4

REPORT INFORMATION
  Report Type: Spontaneous
  Country: US (occurrence: US)
  Receive Date: 20190924
  Receipt Date: 20201223
  Transmission Date: 20210113
  Serious: Yes (Other)
  Sender: FDA-Public Use
  Company Number: US-GILEAD-2019-0429344

PATIENT
  Age: 51 Year
  Sex: Male
  Weight: 67.57 kg

DRUGS (94)
  1. CIMZIA [Concomitant]
     Active Substance: CERTOLIZUMAB PEGOL
     Indication: PSORIATIC ARTHROPATHY
     Dosage: 200 MG/ML
     Dates: start: 20181101
  2. BUDESONIDE. [Concomitant]
     Active Substance: BUDESONIDE
     Indication: COLITIS ULCERATIVE
     Dosage: 9 MG
     Dates: start: 20200109
  3. COLCHICINE. [Concomitant]
     Active Substance: COLCHICINE
     Indication: GOUT
     Dosage: 0.06 MG
     Dates: start: 20160624
  4. DEXILANT [Concomitant]
     Active Substance: DEXLANSOPRAZOLE
     Indication: GASTROOESOPHAGEAL REFLUX DISEASE
     Dosage: 60 MG
     Dates: start: 20160929
  5. DIPHENOXYLATE/ATROPINE [Concomitant]
     Active Substance: ATROPINE\DIPHENOXYLATE
     Indication: DIARRHOEA
     Dosage: 2.5 MG
     Dates: start: 20180416
  6. FLUVIRINE [Concomitant]
     Indication: IMMUNISATION
     Dosage: 5 MG
     Dates: start: 20091020
  7. HYDROCODONE/ACETAMINOPHEN [Concomitant]
     Active Substance: ACETAMINOPHEN\HYDROCODONE
     Indication: PAIN
     Dosage: UNK
     Dates: start: 20180304, end: 2018
  8. LEVAQUIN [Concomitant]
     Active Substance: LEVOFLOXACIN
     Indication: BACTERIAL INFECTION
     Dosage: 750 MG
     Dates: start: 20110413, end: 2011
  9. LIDOCAINE [LIDOCAINE HYDROCHLORIDE] [Concomitant]
     Active Substance: LIDOCAINE HYDROCHLORIDE
     Indication: PAIN
     Dosage: 5 % PATCH
     Dates: start: 20180406
  10. MEPRON [Concomitant]
     Active Substance: ATOVAQUONE
     Indication: PNEUMONIA
     Dosage: UNK, ORAL SUSPENSION
     Dates: start: 20100308, end: 20100806
  11. MESALAMINE. [Concomitant]
     Active Substance: MESALAMINE
     Indication: COLITIS ULCERATIVE
     Dosage: 1.2 G
     Dates: start: 20200108
  12. MOMETASONE [Concomitant]
     Active Substance: MOMETASONE
     Dosage: 0.1 % CREAM
     Dates: start: 20160609, end: 20160725
  13. PREDNISONE. [Concomitant]
     Active Substance: PREDNISONE
     Dosage: 5 MG
     Dates: start: 20160715, end: 20160915
  14. PROTONIX [OMEPRAZOLE] [Concomitant]
     Active Substance: OMEPRAZOLE
     Indication: PEPTIC ULCER
     Dosage: 40 MG
     Dates: start: 20100407, end: 20101129
  15. AMLODIPINE BESYLATE. [Concomitant]
     Active Substance: AMLODIPINE BESYLATE
     Indication: HYPERTENSION
     Dosage: 5 MG
     Dates: start: 20160706, end: 20170919
  16. CIALIS [Concomitant]
     Active Substance: TADALAFIL
     Indication: HYPERTENSION
     Dosage: 20 MG
     Dates: start: 20090801
  17. CIPROFLOXACIN. [Concomitant]
     Active Substance: CIPROFLOXACIN
     Indication: BACTERIAL INFECTION
     Dosage: 500 MG
     Dates: start: 20091202
  18. CLOTRIMAZOLE. [Concomitant]
     Active Substance: CLOTRIMAZOLE
     Indication: FUNGAL INFECTION
     Dosage: 10 MG LOZENGE
     Dates: start: 20151228
  19. FLUVIRINE [Concomitant]
     Dosage: MULTIDOSE VIAL
     Dates: start: 20160916
  20. LORAZEPAM. [Concomitant]
     Active Substance: LORAZEPAM
     Indication: ANXIETY DISORDER
     Dosage: 1 MG
     Dates: start: 20180305
  21. METRONIDAZOLE. [Concomitant]
     Active Substance: METRONIDAZOLE
     Indication: VIRAL INFECTION
     Dosage: 500 MG
     Dates: start: 20191008, end: 2019
  22. OXYCODONE [Concomitant]
     Active Substance: OXYCODONE
     Indication: PAIN
     Dosage: 5 MG
     Dates: start: 20110819, end: 20160714
  23. RANITIDINE. [Concomitant]
     Active Substance: RANITIDINE
     Dosage: 150 MG
     Dates: start: 20180126, end: 20180529
  24. TRAMADOL. [Concomitant]
     Active Substance: TRAMADOL
     Indication: PAIN
     Dosage: 50 MG
     Dates: start: 20160623, end: 2016
  25. ZONALON [Concomitant]
     Active Substance: DOXEPIN HYDROCHLORIDE
     Dosage: 5 % TOPICAL CREAM
     Dates: start: 20160609, end: 2016
  26. IBUPROFEN. [Concomitant]
     Active Substance: IBUPROFEN
     Indication: PAIN
  27. CLOBETASOL [Concomitant]
     Active Substance: CLOBETASOL
     Indication: PSORIASIS
     Dosage: 0.05% SOLUTION 50 ML
     Dates: start: 20090428
  28. CLOBETASOL [Concomitant]
     Active Substance: CLOBETASOL
     Dosage: UNK
     Dates: start: 20160104
  29. DRONABINOL. [Concomitant]
     Active Substance: DRONABINOL
     Dosage: 5 MG
     Dates: start: 20190319
  30. FLUVIRINE [Concomitant]
     Dosage: 5 MG
     Dates: start: 20101019
  31. METOPROLOL. [Concomitant]
     Active Substance: METOPROLOL
     Indication: HYPERTENSION
     Dosage: 50 MG
     Dates: start: 20090205, end: 20191015
  32. MUPIROCIN. [Concomitant]
     Active Substance: MUPIROCIN
     Dosage: 2 % TOPICAL CREAM
     Dates: start: 20091202
  33. PANTOPRAZOLE [Concomitant]
     Active Substance: PANTOPRAZOLE
     Indication: PEPTIC ULCER
     Dosage: 40 MG
     Dates: start: 20101130, end: 20101202
  34. PREDNISONE. [Concomitant]
     Active Substance: PREDNISONE
     Dosage: 2.5 MG
     Dates: start: 20180920, end: 20190401
  35. PREVACID [Concomitant]
     Active Substance: LANSOPRAZOLE
     Indication: PEPTIC ULCER
     Dosage: 30 MG
     Dates: start: 20090520, end: 20091113
  36. WELLBUTRIN [Concomitant]
     Active Substance: BUPROPION HYDROCHLORIDE
     Indication: DEPRESSION
     Dosage: 150 MG XL
     Dates: start: 20081008, end: 20190318
  37. PREDNISOLONE. [Concomitant]
     Active Substance: PREDNISOLONE
     Indication: SPONDYLOARTHROPATHY
     Dosage: 20 MG
     Dates: start: 20100429, end: 20191019
  38. DOXYCYCLINE. [Concomitant]
     Active Substance: DOXYCYCLINE
     Indication: SYPHILIS
     Dosage: UNK
     Dates: start: 20180830, end: 201809
  39. MONTELUKAST [Concomitant]
     Active Substance: MONTELUKAST SODIUM
     Indication: HYPERSENSITIVITY
     Dosage: 10 MG
     Dates: start: 20170403, end: 20171226
  40. PREDNISONE. [Concomitant]
     Active Substance: PREDNISONE
     Indication: PSORIATIC ARTHROPATHY
     Dosage: 10 MG
     Dates: start: 20180611, end: 20191019
  41. PROAIR HFA [Concomitant]
     Active Substance: ALBUTEROL SULFATE
     Indication: ASTHMA
     Dosage: UNK
     Dates: start: 20081008, end: 20100513
  42. RANITIDINE. [Concomitant]
     Active Substance: RANITIDINE
     Indication: PEPTIC ULCER
     Dosage: 150 MG
     Dates: start: 20160916
  43. ZOLPIDEM [Concomitant]
     Active Substance: ZOLPIDEM TARTRATE
     Indication: INSOMNIA
     Dosage: 10 MG
     Dates: start: 20100429, end: 20191001
  44. IBUPROFEN. [Concomitant]
     Active Substance: IBUPROFEN
     Indication: PSORIATIC ARTHROPATHY
     Dosage: 600 MG
     Dates: start: 20081008, end: 20180529
  45. REMICADE [Concomitant]
     Active Substance: INFLIXIMAB
     Indication: PSORIATIC ARTHROPATHY
  46. AMBIEN CR [Concomitant]
     Active Substance: ZOLPIDEM TARTRATE
     Indication: INSOMNIA
     Dosage: 12.5 MG
     Dates: start: 20100504, end: 20100722
  47. APRISO [Concomitant]
     Active Substance: MESALAMINE
     Indication: COLITIS ULCERATIVE
     Dosage: 0.375 G
  48. CLOBETASOL [Concomitant]
     Active Substance: CLOBETASOL
     Indication: SKIN DISORDER
     Dosage: UNK
     Dates: start: 20090818
  49. DIPHENOXYLATE/ATROPINE [Concomitant]
     Active Substance: ATROPINE\DIPHENOXYLATE
     Dosage: UNK
     Dates: start: 20081008, end: 20180417
  50. DOXYCYCLINE HYCLATE. [Concomitant]
     Active Substance: DOXYCYCLINE HYCLATE
     Dosage: 10 MG
     Dates: start: 20171111, end: 2017
  51. DOXYCYCLINE MONOHYDRATE [Concomitant]
     Active Substance: DOXYCYCLINE
     Indication: BACTERIAL INFECTION
     Dosage: UNK
     Dates: start: 20181217
  52. FLORASTOR [LACTOBACILLUS ACIDOPHILUS] [Concomitant]
     Indication: DIARRHOEA
     Dosage: 250 MG
     Dates: start: 20160706
  53. LEVOFLOXACIN. [Concomitant]
     Active Substance: LEVOFLOXACIN
     Indication: BACTERIAL INFECTION
     Dosage: 750 MG
     Dates: start: 20090801, end: 2009
  54. LIALDA [Concomitant]
     Active Substance: MESALAMINE
     Indication: COLITIS ULCERATIVE
     Dosage: 1.2 G
     Dates: start: 20160715
  55. LISINOPRIL. [Concomitant]
     Active Substance: LISINOPRIL
     Indication: HYPERTENSION
     Dosage: 10MG/20MG
     Dates: start: 20100106
  56. LUNESTA [Concomitant]
     Active Substance: ESZOPICLONE
     Indication: INSOMNIA
     Dosage: 3 MG
     Dates: start: 20100429, end: 20100722
  57. METHYLPREDNISOLONE. [Concomitant]
     Active Substance: METHYLPREDNISOLONE
     Indication: ARTHRITIS
     Dosage: 4 MG
     Dates: start: 20160111, end: 20191120
  58. METOPROLOL SUCCINATE. [Concomitant]
     Active Substance: METOPROLOL SUCCINATE
     Indication: HYPERTENSION
     Dosage: UNK
     Dates: start: 20180327
  59. ONDANSETRON [Concomitant]
     Active Substance: ONDANSETRON
     Indication: VOMITING
     Dosage: 4 MG
     Dates: start: 20160623, end: 2016
  60. HUMIRA [Concomitant]
     Active Substance: ADALIMUMAB
     Dosage: UNK
     Dates: start: 20181217, end: 2019
  61. PREDNISOLONE. [Concomitant]
     Active Substance: PREDNISOLONE
     Indication: PSORIATIC ARTHROPATHY
     Dosage: 20 MG
     Dates: start: 20160916
  62. EPIVIR [Concomitant]
     Active Substance: LAMIVUDINE
     Indication: HIV INFECTION
  63. RETROVIR [Concomitant]
     Active Substance: ZIDOVUDINE
     Indication: HIV INFECTION
  64. ZIAGEN [Concomitant]
     Active Substance: ABACAVIR SULFATE
     Indication: HIV INFECTION
  65. BUPROPION. [Concomitant]
     Active Substance: BUPROPION
     Indication: DEPRESSION
     Dosage: 150 MG
     Dates: start: 20100407, end: 20160929
  66. DICYCLOMINE [Concomitant]
     Active Substance: DICYCLOMINE HYDROCHLORIDE
     Indication: IRRITABLE BOWEL SYNDROME
     Dosage: 10 MG
     Dates: start: 20160930
  67. DOXYCYCLINE HYCLATE. [Concomitant]
     Active Substance: DOXYCYCLINE HYCLATE
     Indication: GINGIVAL DISORDER
     Dosage: 100 MG
     Dates: start: 20170220, end: 2017
  68. DOXYCYCLINE HYCLATE. [Concomitant]
     Active Substance: DOXYCYCLINE HYCLATE
     Dosage: 100 MG
     Dates: start: 20191024, end: 2019
  69. DRONABINOL. [Concomitant]
     Active Substance: DRONABINOL
     Indication: VOMITING
     Dosage: 5 MG
     Dates: start: 20000213
  70. FLUCONAZOLE. [Concomitant]
     Active Substance: FLUCONAZOLE
     Indication: FUNGAL INFECTION
     Dosage: 200 MG
     Dates: start: 20160929
  71. HYDROXYZINE HYDROCHLORIDE. [Concomitant]
     Active Substance: HYDROXYZINE HYDROCHLORIDE
     Indication: HYPERSENSITIVITY
     Dosage: UNK
     Dates: start: 20160929, end: 2016
  72. HYDROXYZINE HYDROCHLORIDE. [Concomitant]
     Active Substance: HYDROXYZINE HYDROCHLORIDE
     Dosage: UNK
     Dates: start: 20180514, end: 2018
  73. MESALAMINE. [Concomitant]
     Active Substance: MESALAMINE
     Dosage: 4 G
     Dates: start: 20160715, end: 20170927
  74. SINGULAIR [Concomitant]
     Active Substance: MONTELUKAST SODIUM
     Indication: ASTHMA
     Dosage: 10 MG
     Dates: start: 20081230, end: 20110902
  75. ZETIA [Concomitant]
     Active Substance: EZETIMIBE
     Indication: BLOOD CHOLESTEROL INCREASED
     Dosage: 10 MG
     Dates: start: 20081008, end: 20081230
  76. STRIBILD [Suspect]
     Active Substance: COBICISTAT\ELVITEGRAVIR\EMTRICITABINE\TENOFOVIR DISOPROXIL FUMARATE
     Indication: HIV INFECTION
     Dosage: UNK
     Route: 048
     Dates: start: 2015, end: 2017
  77. ACIPHEX [Concomitant]
     Active Substance: RABEPRAZOLE SODIUM
     Indication: PEPTIC ULCER
     Dosage: 20 MG
     Dates: start: 20100805
  78. AMOXILLIN [AMOXICILLIN SODIUM] [Concomitant]
     Active Substance: AMOXICILLIN SODIUM
     Indication: BACTERIAL INFECTION
     Dosage: 500 MG
     Dates: start: 20081007
  79. BUDEPRION [Concomitant]
     Active Substance: BUPROPION HYDROCHLORIDE
     Indication: DEPRESSION
     Dosage: 300 MG
     Dates: start: 20081008, end: 20090323
  80. BYSTOLIC [Concomitant]
     Active Substance: NEBIVOLOL HYDROCHLORIDE
     Indication: HYPERTENSION
     Dosage: 10 MG
     Dates: start: 20101130, end: 20110303
  81. METHYLPREDNISOLONE. [Concomitant]
     Active Substance: METHYLPREDNISOLONE
     Indication: PEPTIC ULCER
     Dosage: 4 MG
     Dates: start: 20110802, end: 2011
  82. UCERIS [Concomitant]
     Active Substance: BUDESONIDE
     Indication: DIARRHOEA
     Dosage: 9 MG
     Dates: start: 20160823, end: 2016
  83. VIREAD [Suspect]
     Active Substance: TENOFOVIR DISOPROXIL FUMARATE
     Indication: HIV INFECTION
     Dosage: UNK
     Route: 048
     Dates: start: 2006, end: 2016
  84. VIREAD [Suspect]
     Active Substance: TENOFOVIR DISOPROXIL FUMARATE
     Dosage: UNK
     Route: 048
     Dates: start: 2008, end: 200812
  85. ATRIPLA [Suspect]
     Active Substance: EFAVIRENZ\EMTRICITABINE\TENOFOVIR DISOPROXIL FUMARATE
     Indication: HIV INFECTION
     Dosage: UNK
     Route: 048
     Dates: start: 2006, end: 2015
  86. BIKTARVY [Concomitant]
     Active Substance: BICTEGRAVIR SODIUM\EMTRICITABINE\TENOFOVIR ALAFENAMIDE FUMARATE
  87. HUMIRA [Concomitant]
     Active Substance: ADALIMUMAB
     Indication: PSORIATIC ARTHROPATHY
     Dosage: UNK
     Dates: start: 20181120, end: 2019
  88. GENVOYA [Concomitant]
     Active Substance: COBICISTAT\ELVITEGRAVIR\EMTRICITABINE\TENOFOVIR ALAFENAMIDE FUMARATE
     Indication: HIV INFECTION
  89. ZERIT [Concomitant]
     Active Substance: STAVUDINE
     Indication: HIV INFECTION
  90. CLINDAMYCIN. [Concomitant]
     Active Substance: CLINDAMYCIN
     Indication: BACTERIAL INFECTION
     Dosage: 300 MG
     Dates: start: 20180508
  91. CYCLOBENZAPRINE. [Concomitant]
     Active Substance: CYCLOBENZAPRINE
     Indication: MUSCLE SPASMS
     Dosage: 10 MG
     Dates: start: 20180424, end: 2018
  92. LANSOPRAZOLE. [Concomitant]
     Active Substance: LANSOPRAZOLE
     Indication: PEPTIC ULCER
     Dosage: 30 MG
     Dates: start: 20090520, end: 20111128
  93. OXYCODONE AND ACETAMINOPHEN [Concomitant]
     Active Substance: ACETAMINOPHEN\OXYCODONE HYDROCHLORIDE
     Indication: PAIN
     Dosage: 5-325MG
     Dates: start: 20180305, end: 20180508
  94. PREDNISONE. [Concomitant]
     Active Substance: PREDNISONE
     Indication: PEPTIC ULCER
     Dosage: 10 MG
     Dates: start: 20160706

REACTIONS (16)
  - Muscle atrophy [Not Recovered/Not Resolved]
  - Anhedonia [Not Recovered/Not Resolved]
  - Liver function test increased [Unknown]
  - Anxiety [Not Recovered/Not Resolved]
  - Osteopenia [Not Recovered/Not Resolved]
  - Emotional distress [Not Recovered/Not Resolved]
  - Foot fracture [Unknown]
  - Quality of life decreased [Unknown]
  - Decreased activity [Unknown]
  - Pain [Not Recovered/Not Resolved]
  - Rib fracture [Unknown]
  - Multiple fractures [Not Recovered/Not Resolved]
  - Loss of personal independence in daily activities [Unknown]
  - Grip strength decreased [Unknown]
  - Hand fracture [Not Recovered/Not Resolved]
  - Blood calcium decreased [Unknown]

NARRATIVE: CASE EVENT DATE: 2018
